FAERS Safety Report 15129929 (Version 2)
Quarter: 2018Q3

REPORT INFORMATION
  Report Type: Spontaneous
  Country: GB (occurrence: GB)
  Receive Date: 20180711
  Receipt Date: 20180731
  Transmission Date: 20181010
  Serious: Yes (Death, Hospitalization, Disabling)
  Sender: FDA-Public Use
  Company Number: GB-MYLANLABS-2018M1052050

PATIENT
  Sex: Female

DRUGS (2)
  1. CLOZARIL [Suspect]
     Active Substance: CLOZAPINE
     Indication: HALLUCINATION
     Dosage: UNK
     Route: 048
     Dates: start: 20101223
  2. CLOZARIL [Suspect]
     Active Substance: CLOZAPINE
     Indication: SCHIZOPHRENIA
     Dosage: UNK
     Route: 048
     Dates: start: 20061017

REACTIONS (4)
  - Death [Fatal]
  - Disease complication [Unknown]
  - Parkinson^s disease [Unknown]
  - Multiple sclerosis [Unknown]
